FAERS Safety Report 5553661-8 (Version None)
Quarter: 2007Q4

REPORT INFORMATION
  Report Type: 
  Country: None (occurrence: None)
  Receive Date: 20071213
  Receipt Date: 20071205
  Transmission Date: 20080405
  Serious: Yes (Other)
  Sender: FDA-Public Use
  Company Number: PHRM2007FR02772

PATIENT
  Age: 31 Year
  Sex: Male

DRUGS (5)
  1. RIVOTRIL [Suspect]
     Route: 048
     Dates: start: 20071127, end: 20071204
  2. LEPONEX [Suspect]
     Dosage: 100 MG/DAY
     Route: 048
     Dates: start: 20071127
  3. LEPONEX [Suspect]
     Dosage: 150 MG/DAY
     Route: 048
  4. LEPONEX [Suspect]
     Dosage: 200 MG/DAY
     Route: 048
  5. LEPONEX [Suspect]
     Dosage: 250 MG/DAY
     Route: 048
     Dates: end: 20071204

REACTIONS (2)
  - EYELID OEDEMA [None]
  - FACE OEDEMA [None]
